FAERS Safety Report 8852775 (Version 2)
Quarter: 2012Q4

REPORT INFORMATION
  Report Type: 
  Country: US (occurrence: US)
  Receive Date: 20121022
  Receipt Date: 20121205
  Transmission Date: 20130627
  Serious: No
  Sender: FDA-Public Use
  Company Number: US-PFIZER INC-2012258231

PATIENT
  Age: 55 Year
  Sex: Female
  Weight: 86 kg

DRUGS (2)
  1. PREMPRO [Suspect]
     Indication: HOT FLASHES
     Dosage: 0.3/1.5 mg, 1x/day
     Route: 048
     Dates: start: 201205, end: 20121001
  2. CLONIDINE [Concomitant]
     Indication: BLOOD PRESSURE HIGH
     Dosage: UNK, 1x/day

REACTIONS (1)
  - Drug ineffective [Unknown]
